FAERS Safety Report 6204203-5 (Version None)
Quarter: 2009Q2

REPORT INFORMATION
  Report Type: 
  Country: None (occurrence: None)
  Receive Date: 20090526
  Receipt Date: 20090526
  Transmission Date: 20091009
  Serious: Yes (Life-Threatening)
  Sender: FDA-Public Use
  Company Number: None

PATIENT
  Age: 54 Year
  Sex: Female
  Weight: 71.2147 kg

DRUGS (9)
  1. THIORIDAZINE HCL [Suspect]
     Indication: SCHIZOAFFECTIVE DISORDER BIPOLAR TYPE
     Dosage: 200 MG TWICE DAILY PO
     Route: 048
     Dates: start: 20090206, end: 20090316
  2. HALOPERIDOL DECANOATE [Concomitant]
  3. OXCARBAZEPINE [Concomitant]
  4. DIVALPROEX EXTENDED-RELEASE [Concomitant]
  5. METFORMIN HYDROCHLORIDE [Concomitant]
  6. BENZTROPINE [Concomitant]
  7. CLONIDINE [Concomitant]
  8. NIFEDIPINE [Concomitant]
  9. LORAZPEAM [Concomitant]

REACTIONS (3)
  - ELECTROCARDIOGRAM QT PROLONGED [None]
  - HEART RATE INCREASED [None]
  - RESPIRATORY RATE INCREASED [None]
